FAERS Safety Report 4894196-5 (Version None)
Quarter: 2006Q1

REPORT INFORMATION
  Report Type: 
  Country: None (occurrence: None)
  Receive Date: 20060127
  Receipt Date: 20050927
  Transmission Date: 20060701
  Serious: No
  Sender: FDA-Public Use
  Company Number: 20050601652

PATIENT
  Sex: Female

DRUGS (2)
  1. WELLBUTRIN [Suspect]
     Indication: DRUG USE FOR UNKNOWN INDICATION
     Route: 048
  2. TYLENOL [Suspect]
     Indication: NASOPHARYNGITIS
     Dosage: 2U PER DAY
     Dates: start: 20050601, end: 20050601

REACTIONS (3)
  - DRUG INTERACTION [None]
  - DYSPNOEA [None]
  - THROAT TIGHTNESS [None]
